FAERS Safety Report 4768035-7 (Version None)
Quarter: 2005Q3

REPORT INFORMATION
  Report Type: 
  Country: None (occurrence: None)
  Receive Date: 20050913
  Receipt Date: 20050826
  Transmission Date: 20060218
  Serious: Yes (Death, Hospitalization)
  Sender: FDA-Public Use
  Company Number: 2005BI010967

PATIENT
  Age: 78 Year
  Sex: Female

DRUGS (2)
  1. AVONEX [Suspect]
     Indication: MULTIPLE SCLEROSIS
     Dosage: 30 UG;QW;IM
     Route: 030
     Dates: start: 19990601, end: 20030829
  2. AVONEX [Suspect]
     Indication: MULTIPLE SCLEROSIS
     Dosage: 30 UG;QW;IM
     Route: 030
     Dates: start: 20030906, end: 20030420

REACTIONS (33)
  - ABDOMINAL DISTENSION [None]
  - ANURIA [None]
  - AORTIC VALVE STENOSIS [None]
  - ASCITES [None]
  - ATRIAL FIBRILLATION [None]
  - AXILLARY VEIN THROMBOSIS [None]
  - BODY TEMPERATURE INCREASED [None]
  - CARDIAC ARREST [None]
  - CARDIAC FAILURE CONGESTIVE [None]
  - DIABETES MELLITUS NON-INSULIN-DEPENDENT [None]
  - ENTEROCOCCAL INFECTION [None]
  - FATIGUE [None]
  - FUNGAL INFECTION [None]
  - GASTRITIS [None]
  - HAEMATOCRIT DECREASED [None]
  - HAEMODIALYSIS [None]
  - HYPERVOLAEMIA [None]
  - HYPOCAPNIA [None]
  - HYPOTENSION [None]
  - MENTAL STATUS CHANGES [None]
  - MITRAL VALVE INCOMPETENCE [None]
  - MYOCARDIAL INFARCTION [None]
  - PLEURAL EFFUSION [None]
  - PNEUMONIA [None]
  - PORTAL VEIN THROMBOSIS [None]
  - PRODUCTIVE COUGH [None]
  - RASH [None]
  - RESPIRATORY ARREST [None]
  - RESPIRATORY FAILURE [None]
  - TRACHEOSTOMY MALFUNCTION [None]
  - TRICUSPID VALVE INCOMPETENCE [None]
  - URINARY TRACT INFECTION FUNGAL [None]
  - WHEEZING [None]
